FAERS Safety Report 24362918 (Version 1)
Quarter: 2024Q3

REPORT INFORMATION
  Report Type: Spontaneous
  Country: US (occurrence: None)
  Receive Date: 20240925
  Receipt Date: 20240925
  Transmission Date: 20241016
  Serious: Yes (Hospitalization, Other)
  Sender: Public
  Company Number: None

PATIENT
  Age: 49 Year
  Sex: Female
  Weight: 101.2 kg

DRUGS (17)
  1. SKYRIZI [Suspect]
     Active Substance: RISANKIZUMAB-RZAA
     Indication: Psoriasis
     Dosage: OTHER FREQUENCY : EVERY 12 WEEKS;?
     Route: 058
  2. acetaminophen 325 mg tablet [Concomitant]
  3. BUSPIRONE 15 MG tablet [Concomitant]
  4. clobetasol 0.05 % topical solution [Concomitant]
  5. diphenhydrAMINE 25 MG tablet [Concomitant]
  6. DULOXETINE 60 MG DR capsule [Concomitant]
  7. FLUCONAZOLE [Concomitant]
     Active Substance: FLUCONAZOLE
  8. GABAPENTIN [Concomitant]
     Active Substance: GABAPENTIN
  9. HYDROCORTISONE [Concomitant]
     Active Substance: HYDROCORTISONE\HYDROCORTISONE ACETATE
  10. KETOCONAZOLE [Concomitant]
     Active Substance: KETOCONAZOLE
  11. Lidocaine 4 % patch [Concomitant]
  12. metroNIDAZOLE 0.75 % gel [Concomitant]
  13. mupirocin 2% topical ointment [Concomitant]
  14. tacrolimus (PROTOPIC) 0.1 % ointment [Concomitant]
  15. TRAZODONE [Concomitant]
     Active Substance: TRAZODONE HYDROCHLORIDE
  16. TRIAMCINOLONE ACETONIDE [Concomitant]
     Active Substance: TRIAMCINOLONE ACETONIDE
  17. Vitamin E 400 UNIT Oral Tablet [Concomitant]

REACTIONS (8)
  - Acute respiratory distress syndrome [None]
  - Pulseless electrical activity [None]
  - Cardiac arrest [None]
  - Endotracheal intubation complication [None]
  - Brain injury [None]
  - Lung consolidation [None]
  - Pneumonia [None]
  - Lymphadenopathy [None]

NARRATIVE: CASE EVENT DATE: 20240207
